FAERS Safety Report 4595046-7 (Version None)
Quarter: 2005Q1

REPORT INFORMATION
  Report Type: 
  Country: None (occurrence: None)
  Receive Date: 20050223
  Receipt Date: 20050208
  Transmission Date: 20050727
  Serious: Yes (Life-Threatening)
  Sender: FDA-Public Use
  Company Number: 2005VX000153

PATIENT
  Age: 19 Year
  Sex: Female

DRUGS (2)
  1. PROSTIGMIN                 (NEOSTIGMINE METILSULFATE) [Suspect]
     Dosage: 2.5 MG, INTRAVENOUS
     Route: 042
  2. ATROPINE [Suspect]
     Dosage: 1 MG , INTRAVENOUS
     Route: 042

REACTIONS (12)
  - ATRIOVENTRICULAR BLOCK COMPLETE [None]
  - ATRIOVENTRICULAR BLOCK SECOND DEGREE [None]
  - BLOOD PRESSURE DIASTOLIC DECREASED [None]
  - DELAYED RECOVERY FROM ANAESTHESIA [None]
  - DRUG HYPERSENSITIVITY [None]
  - DRUG INEFFECTIVE [None]
  - DRUG RESISTANCE [None]
  - HEART RATE DECREASED [None]
  - HYPOTENSION [None]
  - NEUROMUSCULAR BLOCKADE [None]
  - SUPRAVENTRICULAR TACHYCARDIA [None]
  - VENTRICULAR TACHYCARDIA [None]
